FAERS Safety Report 18251204 (Version 1)
Quarter: 2020Q3

REPORT INFORMATION
  Report Type: Spontaneous
  Country: NL (occurrence: NL)
  Receive Date: 20200910
  Receipt Date: 20200910
  Transmission Date: 20201103
  Serious: Yes (Other)
  Sender: FDA-Public Use
  Company Number: NL-TEVA-2020-NL-1824586

PATIENT
  Age: 79 Year
  Sex: Female

DRUGS (7)
  1. HYDROCHLOORTHIAZIDE TABLET 12,5MG / BRAND NAME NOT SPECIFIED [Concomitant]
     Active Substance: HYDROCHLOROTHIAZIDE
     Dosage: THERAPY START DATE AND END DATE: ASKU, 12.5 MILLIGRAM
  2. ACETYLSALICYLZUUR TABLET  80MG / BRAND NAME NOT SPECIFIED [Concomitant]
     Dosage: THERAPY START DATE AND END DATE: ASKU, 80 MILLIGRAM
  3. AMLODIPINE TABLET 10MG / BRAND NAME NOT SPECIFIED [Concomitant]
     Dosage: THERAPY START DATE AND END DATE: ASKU, 10 MILLIGRAM
  4. ALENDRONINEZUUR TABLET 70MG / BRAND NAME NOT SPECIFIED [Suspect]
     Active Substance: ALENDRONIC ACID
     Indication: OSTEOPOROSIS
     Dosage: 70 MILLIGRAM, 1X PER WEEK 1 PIECE
     Dates: start: 20170705, end: 20200601
  5. METOPROLOL TABLET MGA  50MG (SUCCINAAT) / BRAND NAME NOT SPECIFIED [Concomitant]
     Dosage: THERAPY START DATE AND END DATE: ASKU, 50 MILLIGRAM
  6. CALCIUMCARB/COLECALC KAUWTB 1,25G/800IE (500MG CA) / BRAND NAME NOT SP [Concomitant]
     Dosage: THERAPY START DATE AND END DATE: ASKU, 1 DOSAGE FORMS, 1.25 GRAM / 800 UNITS
  7. LISINOPRIL TABLET 20MG / BRAND NAME NOT SPECIFIED [Concomitant]
     Dosage: THERAPY START DATE AND END DATE: ASKU, 20 MILLIGRAM

REACTIONS (1)
  - Oesophageal cancer metastatic [Not Recovered/Not Resolved]

NARRATIVE: CASE EVENT DATE: 20200811
